FAERS Safety Report 22167453 (Version 11)
Quarter: 2024Q3

REPORT INFORMATION
  Report Type: Spontaneous
  Country: US (occurrence: US)
  Receive Date: 20230403
  Receipt Date: 20240802
  Transmission Date: 20241017
  Serious: Yes (Hospitalization, Other)
  Sender: SANOFI AVENTIS
  Company Number: US-SA-SAC20230331000811

PATIENT
  Age: 20 Year
  Sex: Male
  Weight: 90.7 kg

DRUGS (10)
  1. ELOCTATE [Suspect]
     Active Substance: EFMOROCTOCOG ALFA
     Indication: Factor VIII deficiency
     Dosage: 5000 U (4500-5500), BIW FOR BLEEDING
     Route: 041
     Dates: start: 201404
  2. ELOCTATE [Suspect]
     Active Substance: EFMOROCTOCOG ALFA
     Indication: Factor VIII deficiency
     Dosage: 5000 U (4500-5500), BIW FOR BLEEDING
     Route: 041
     Dates: start: 201404
  3. ELOCTATE [Suspect]
     Active Substance: EFMOROCTOCOG ALFA
     Indication: Haemorrhage
     Dosage: 5000 U (4500-5500), AS NEEDED (PRN) FOR BLEEDING
     Route: 041
     Dates: start: 201404
  4. ELOCTATE [Suspect]
     Active Substance: EFMOROCTOCOG ALFA
     Indication: Haemorrhage
     Dosage: 5000 U (4500-5500), AS NEEDED (PRN) FOR BLEEDING
     Route: 041
     Dates: start: 201404
  5. ELOCTATE [Suspect]
     Active Substance: EFMOROCTOCOG ALFA
     Dosage: 5000 U, BIW
     Route: 042
     Dates: start: 202211
  6. ELOCTATE [Suspect]
     Active Substance: EFMOROCTOCOG ALFA
     Dosage: 5000 U, BIW
     Route: 042
     Dates: start: 202211
  7. ELOCTATE [Suspect]
     Active Substance: EFMOROCTOCOG ALFA
     Dosage: 5000 U, PRN
     Route: 042
     Dates: start: 202211
  8. ELOCTATE [Suspect]
     Active Substance: EFMOROCTOCOG ALFA
     Dosage: 5000 U, PRN
     Route: 042
     Dates: start: 202211
  9. OZEMPIC [Suspect]
     Active Substance: SEMAGLUTIDE
     Dosage: UNK
  10. SODIUM CHLORIDE [Concomitant]
     Active Substance: SODIUM CHLORIDE
     Dosage: UNK

REACTIONS (14)
  - Kidney infection [Unknown]
  - Dental operation [Unknown]
  - Epistaxis [Unknown]
  - Mouth haemorrhage [Unknown]
  - Constipation [Unknown]
  - Pain [Unknown]
  - Haematoma [Unknown]
  - Epistaxis [Recovered/Resolved]
  - Weight decreased [Unknown]
  - Diarrhoea [Unknown]
  - Hypotension [Unknown]
  - Respiratory tract congestion [Unknown]
  - Epistaxis [Recovered/Resolved]
  - Epistaxis [Unknown]

NARRATIVE: CASE EVENT DATE: 20230101
